FAERS Safety Report 8765362 (Version 3)
Quarter: 2012Q4

REPORT INFORMATION
  Report Type: 
  Country: AR (occurrence: AR)
  Receive Date: 20120831
  Receipt Date: 20121001
  Transmission Date: 20130627
  Serious: Yes (Other)
  Sender: FDA-Public Use
  Company Number: AR-AMGEN-ARGSP2012054627

PATIENT
  Age: 59 Year
  Sex: Female

DRUGS (7)
  1. ENBREL [Suspect]
     Indication: RHEUMATOID ARTHRITIS
     Dosage: 50 mg, weekly (use pre filled syringes)
     Route: 058
     Dates: start: 20050621, end: 20120601
  2. ENBREL [Suspect]
     Dosage: 50 mg, weekly (use pre filled syringes)
     Route: 058
     Dates: start: 20120709
  3. ENBREL [Suspect]
     Dosage: 50 mg, weekly (use pre filled pen)
     Route: 058
     Dates: start: 20120821
  4. METHOTREXATE [Concomitant]
     Dosage: UNK
  5. LOTRIAL D [Concomitant]
     Dosage: UNK
  6. ATORVASTATIN [Concomitant]
     Dosage: UNK
  7. SERTRALINE [Concomitant]
     Dosage: UNK

REACTIONS (3)
  - Wrong technique in drug usage process [Recovered/Resolved]
  - Application site pain [Not Recovered/Not Resolved]
  - Rheumatoid arthritis [Recovered/Resolved]
